FAERS Safety Report 6401511-X (Version None)
Quarter: 2009Q4

REPORT INFORMATION
  Report Type: 
  Country: None (occurrence: None)
  Receive Date: 20091013
  Receipt Date: 20091013
  Transmission Date: 20100525
  Serious: Yes (Other)
  Sender: FDA-Public Use
  Company Number: None

PATIENT
  Age: 48 Year
  Sex: Female
  Weight: 53.978 kg

DRUGS (1)
  1. ZOCOR [Suspect]
     Indication: BLOOD CHOLESTEROL INCREASED
     Dosage: 1 TABLET -20 MG.-  ONCE DAILY PO
     Route: 048
     Dates: start: 20091008, end: 20091009

REACTIONS (2)
  - HEART RATE INCREASED [None]
  - PARAESTHESIA [None]
